FAERS Safety Report 9984095 (Version 1)
Quarter: 2014Q1

REPORT INFORMATION
  Report Type: Report from Study
  Country: US (occurrence: US)
  Receive Date: 20140307
  Receipt Date: 20140307
  Transmission Date: 20141002
  Serious: No
  Sender: FDA-Public Use
  Company Number: US-ABBVIE-13P-163-1183443-00

PATIENT
  Age: 61 Year
  Sex: Female

DRUGS (9)
  1. HUMIRA [Suspect]
     Indication: PSORIATIC ARTHROPATHY
     Dates: start: 201302
  2. LYRICA [Concomitant]
     Indication: FIBROMYALGIA
  3. HYDROCODONE [Concomitant]
     Indication: BACK PAIN
     Dosage: 7.5/325 MG
  4. HYDROCODONE [Concomitant]
     Indication: FIBROMYALGIA
  5. BACLOFEN [Concomitant]
     Indication: MUSCLE SPASMS
     Dosage: AT BEDTIME
  6. SINGULAIR [Concomitant]
     Indication: HYPERSENSITIVITY
  7. PRISTIQ [Concomitant]
     Indication: DEPRESSION
  8. XANAX [Concomitant]
     Indication: DEPRESSION
  9. RANITIDINE [Concomitant]
     Indication: GASTROOESOPHAGEAL REFLUX DISEASE

REACTIONS (1)
  - Skin discolouration [Not Recovered/Not Resolved]
